FAERS Safety Report 5200654-6 (Version None)
Quarter: 2006Q4

REPORT INFORMATION
  Report Type: 
  Country: None (occurrence: None)
  Receive Date: 20061016
  Receipt Date: 20060705
  Transmission Date: 20070319
  Serious: No
  Sender: FDA-Public Use
  Company Number: 2006SP002633

PATIENT
  Age: 55 Year
  Sex: Female
  Weight: 48.5349 kg

DRUGS (5)
  1. LUNESTA [Suspect]
     Indication: INSOMNIA
     Dosage: SEE IMAGE
     Route: 048
     Dates: start: 20051001, end: 20051001
  2. LUNESTA [Suspect]
     Indication: INSOMNIA
     Dosage: SEE IMAGE
     Route: 048
     Dates: start: 20051101, end: 20051101
  3. NEURONTIN [Concomitant]
  4. WELLBUTRIN [Concomitant]
  5. MORPHINE [Concomitant]

REACTIONS (1)
  - INSOMNIA [None]
